FAERS Safety Report 7887748-1 (Version None)
Quarter: 2011Q4

REPORT INFORMATION
  Report Type: 
  Country: None (occurrence: None)
  Receive Date: 20111101
  Receipt Date: 20111021
  Transmission Date: 20120403
  Serious: Yes (Hospitalization)
  Sender: FDA-Public Use
  Company Number: 2011000552

PATIENT
  Age: 87 Year
  Sex: Female

DRUGS (1)
  1. TARCEVA [Suspect]
     Indication: LUNG CARCINOMA CELL TYPE UNSPECIFIED STAGE 0
     Dosage: 25 MG, BID, ORAL, 50 MG, UID/QD
     Route: 048
     Dates: start: 20100929

REACTIONS (4)
  - INTRA-ABDOMINAL HAEMORRHAGE [None]
  - URTICARIA [None]
  - INCORRECT DOSE ADMINISTERED [None]
  - EYE INFECTION [None]
